FAERS Safety Report 10084800 (Version 2)
Quarter: 2014Q2

REPORT INFORMATION
  Report Type: Spontaneous
  Country: CN (occurrence: CN)
  Receive Date: 20140417
  Receipt Date: 20140417
  Transmission Date: 20141212
  Serious: Yes (Hospitalization)
  Sender: FDA-Public Use
  Company Number: CN-ASTRAZENECA-2014SE16713

PATIENT
  Age: 69 Year
  Sex: Female

DRUGS (4)
  1. FASLODEX [Suspect]
     Indication: BREAST CANCER
     Dosage: TOOK TWO 500 MG DOSES
     Route: 030
     Dates: start: 20140306, end: 20140306
  2. GLUCOBAY [Concomitant]
     Route: 048
  3. NOVONORM [Concomitant]
     Route: 048
  4. INSULIN [Concomitant]
     Route: 058

REACTIONS (4)
  - Overdose [Unknown]
  - Pyrexia [Recovered/Resolved]
  - Asthenia [Recovering/Resolving]
  - Decreased appetite [Recovering/Resolving]
